FAERS Safety Report 9140612 (Version 1)
Quarter: 2013Q1

REPORT INFORMATION
  Report Type: Spontaneous
  Country: US (occurrence: US)
  Receive Date: 20130305
  Receipt Date: 20130305
  Transmission Date: 20140127
  Serious: Yes (Other)
  Sender: FDA-Public Use
  Company Number: PHEH2013US005205

PATIENT
  Sex: Male

DRUGS (14)
  1. DIOVAN [Suspect]
     Dosage: 320 MG, QD
     Route: 048
  2. CLONIDINE [Concomitant]
     Dosage: 3 MG, UNK
  3. SIMVASTATIN [Concomitant]
     Dosage: 40 MG, UNK
  4. AMLODIPINE [Concomitant]
     Dosage: 10 MG, UNK
  5. FUROSEMIDE [Concomitant]
     Dosage: 40 MG, UNK
  6. AMITRIPTYLINE [Concomitant]
     Dosage: 50 MG, UNK
  7. MINOXIDIL [Concomitant]
     Dosage: 10 MG, UNK
  8. CITALOPRAM [Concomitant]
     Dosage: 40 MG, UNK
  9. LISINOPRIL [Concomitant]
     Dosage: 20 MG, UNK
  10. METOPROLOL [Concomitant]
     Dosage: 100 MG, UNK
  11. POTASSIUM CHLORIDE [Concomitant]
     Dosage: UNK UKN, UNK
  12. NOVOLIN [Concomitant]
     Dosage: UNK UKN, UNK
  13. WARFARIN [Concomitant]
     Dosage: UNK UKN, UNK
  14. HUMULIN [Concomitant]
     Dosage: UNK UKN, UNK

REACTIONS (6)
  - Cardiac failure congestive [Unknown]
  - Dementia Alzheimer^s type [Unknown]
  - Pulmonary embolism [Unknown]
  - Insulin-requiring type 2 diabetes mellitus [Unknown]
  - Herpes zoster [Unknown]
  - Hypertension [Unknown]
